FAERS Safety Report 7046405-4 (Version None)
Quarter: 2010Q4

REPORT INFORMATION
  Report Type: 
  Country: None (occurrence: None)
  Receive Date: 20101014
  Receipt Date: 20101008
  Transmission Date: 20110411
  Serious: Yes (Other)
  Sender: FDA-Public Use
  Company Number: JP-PFIZER INC-2010113166

PATIENT
  Age: 70 Year
  Sex: Male

DRUGS (6)
  1. METHYLPREDNISOLONE [Suspect]
     Indication: ACUTE GRAFT VERSUS HOST DISEASE
  2. MYCOPHENOLATE MOFETIL [Concomitant]
     Indication: GRAFT VERSUS HOST DISEASE
  3. PENTOSTATIN [Concomitant]
     Indication: GRAFT VERSUS HOST DISEASE
  4. CYCLOSPORINE [Concomitant]
     Indication: PROPHYLAXIS AGAINST GRAFT VERSUS HOST DISEASE
  5. TACROLIMUS [Concomitant]
     Indication: GRAFT VERSUS HOST DISEASE
  6. METHOTREXATE [Concomitant]
     Indication: PROPHYLAXIS AGAINST GRAFT VERSUS HOST DISEASE

REACTIONS (3)
  - BLOOD BETA-D-GLUCAN INCREASED [None]
  - CYTOMEGALOVIRUS TEST POSITIVE [None]
  - PNEUMONIA [None]
